FAERS Safety Report 7423803-8 (Version None)
Quarter: 2011Q2

REPORT INFORMATION
  Report Type: 
  Country: None (occurrence: None)
  Receive Date: 20110419
  Receipt Date: 20110406
  Transmission Date: 20111010
  Serious: Yes (Other)
  Sender: FDA-Public Use
  Company Number: PHHY2011ZA28952

PATIENT
  Sex: Female

DRUGS (1)
  1. ACLASTA [Suspect]
     Dosage: 5 MG/ 100 ML
     Route: 042
     Dates: start: 20090101

REACTIONS (1)
  - CEREBROVASCULAR ACCIDENT [None]
